FAERS Safety Report 7299788-4 (Version None)
Quarter: 2011Q1

REPORT INFORMATION
  Report Type: 
  Country: None (occurrence: None)
  Receive Date: 20110217
  Receipt Date: 20110208
  Transmission Date: 20110831
  Serious: Yes (Hospitalization)
  Sender: FDA-Public Use
  Company Number: SE-ASTRAZENECA-2011SE07257

PATIENT
  Sex: Male

DRUGS (13)
  1. SELOKENZOK [Concomitant]
     Route: 048
  2. ISOSORBIDMONONITRAT MYLAN [Concomitant]
     Route: 048
  3. ATACAND [Suspect]
     Indication: CARDIAC FAILURE
     Route: 048
  4. FURIX [Suspect]
     Route: 048
  5. XATRAL OD [Concomitant]
     Route: 048
  6. SPIRONOLAKTON [Concomitant]
  7. DACTACORT [Concomitant]
  8. SIMVASTATIN [Concomitant]
  9. ATACAND [Suspect]
     Route: 048
  10. FURIX [Suspect]
     Indication: CARDIAC FAILURE
     Route: 048
  11. WARAN [Suspect]
     Indication: ATRIAL FIBRILLATION
     Route: 048
     Dates: end: 20101001
  12. OMEPRAZOLE [Concomitant]
  13. NITROMEX [Concomitant]
     Route: 048

REACTIONS (2)
  - HYPOTENSION [None]
  - GASTROINTESTINAL HAEMORRHAGE [None]
